FAERS Safety Report 8121476-2 (Version None)
Quarter: 2012Q1

REPORT INFORMATION
  Report Type: 
  Country: None (occurrence: None)
  Receive Date: 20120208
  Receipt Date: 20120203
  Transmission Date: 20120608
  Serious: No
  Sender: FDA-Public Use
  Company Number: US-PFIZER INC-2012032092

PATIENT
  Age: 92 Year
  Sex: Female

DRUGS (1)
  1. TOVIAZ [Suspect]
     Dosage: UNK 1X/DAY (ONCE A DAY AT NIGHT)

REACTIONS (1)
  - DRUG EFFECT DECREASED [None]
